FAERS Safety Report 10480194 (Version 2)
Quarter: 2014Q3

REPORT INFORMATION
  Report Type: Report from Study
  Country: JP (occurrence: JP)
  Receive Date: 20140929
  Receipt Date: 20140929
  Transmission Date: 20150326
  Serious: Yes (Life-Threatening, Hospitalization, Other)
  Sender: FDA-Public Use
  Company Number: JP-BRISTOL-MYERS SQUIBB COMPANY-14455042

PATIENT
  Age: 81 Year
  Sex: Female

DRUGS (3)
  1. GASMOTIN [Concomitant]
     Active Substance: MOSAPRIDE CITRATE
     Indication: GASTRITIS
     Dosage: 22SEP7-3MAR8,27NOV8-30NOV9
     Route: 048
     Dates: start: 20070922, end: 20091130
  2. BARACLUDE [Suspect]
     Active Substance: ENTECAVIR
     Indication: HEPATITIS B
     Route: 048
     Dates: start: 20071112
  3. URSO [Concomitant]
     Active Substance: URSODIOL
     Indication: HEPATITIS B
     Route: 048
     Dates: start: 20000721, end: 20081126

REACTIONS (1)
  - Hepatic cancer [Unknown]

NARRATIVE: CASE EVENT DATE: 20080818
